FAERS Safety Report 7820642-0 (Version None)
Quarter: 2011Q4

REPORT INFORMATION
  Report Type: 
  Country: None (occurrence: None)
  Receive Date: 20111012
  Receipt Date: 20110927
  Transmission Date: 20120403
  Serious: Yes (Hospitalization)
  Sender: FDA-Public Use
  Company Number: 2011SP045722

PATIENT
  Age: 65 Year
  Sex: Female

DRUGS (6)
  1. METFORMIN HCL [Concomitant]
  2. BROMAZEPAM [Concomitant]
  3. LEVOTHYROXINE SODIUM [Concomitant]
  4. DESLORATADINE [Suspect]
     Indication: PRODUCT USED FOR UNKNOWN INDICATION
     Dosage: 5 MG;QPM;PO
     Route: 048
  5. EBASTINE [Suspect]
     Dosage: 10 MG;QPM;PO
     Route: 048
     Dates: start: 20110525, end: 20110531
  6. THIAMINE HCL [Concomitant]

REACTIONS (4)
  - VERTIGO [None]
  - CHEST PAIN [None]
  - VENTRICULAR TACHYCARDIA [None]
  - NODAL ARRHYTHMIA [None]
